FAERS Safety Report 9452500 (Version 1)
Quarter: 2013Q3

REPORT INFORMATION
  Report Type: Spontaneous
  Country: US (occurrence: US)
  Receive Date: 20130812
  Receipt Date: 20130812
  Transmission Date: 20140515
  Serious: No
  Sender: FDA-Public Use
  Company Number: US-PFIZER INC-2013228064

PATIENT
  Sex: Male

DRUGS (5)
  1. VIAGRA [Suspect]
     Dosage: 100 MG, UNK
  2. LYRICA [Concomitant]
     Dosage: UNK
  3. MIRTAZAPINE [Concomitant]
     Dosage: UNK
  4. OXYCONTIN [Concomitant]
     Dosage: UNK
  5. TIZANIDINE [Concomitant]
     Dosage: UNK

REACTIONS (8)
  - Depressed mood [Unknown]
  - Feeling abnormal [Unknown]
  - Mood altered [Unknown]
  - Palpitations [Unknown]
  - Anxiety [Unknown]
  - Tremor [Unknown]
  - Flushing [Unknown]
  - Abdominal discomfort [Unknown]
